FAERS Safety Report 21081331 (Version 1)
Quarter: 2022Q3

REPORT INFORMATION
  Report Type: Other
  Country: GB (occurrence: GB)
  Receive Date: 20220714
  Receipt Date: 20220714
  Transmission Date: 20221026
  Serious: No
  Sender: FDA-Public Use
  Company Number: GB-MHRA-MED-202207011143037230-STVJH

PATIENT
  Age: 35 Year
  Sex: Female
  Weight: 96 kg

DRUGS (1)
  1. SERTRALINE HYDROCHLORIDE [Suspect]
     Active Substance: SERTRALINE HYDROCHLORIDE
     Indication: Depression
     Dosage: 100 MG, QD (TABLET UNCOATED)
     Route: 048
     Dates: start: 20190101, end: 20220501

REACTIONS (2)
  - Maternal exposure during breast feeding [Unknown]
  - Hypoaesthesia [Not Recovered/Not Resolved]

NARRATIVE: CASE EVENT DATE: 20211231
